FAERS Safety Report 21809961 (Version 1)
Quarter: 2022Q4

REPORT INFORMATION
  Report Type: Spontaneous
  Country: US (occurrence: None)
  Receive Date: 20221231
  Receipt Date: 20221231
  Transmission Date: 20230112
  Serious: Yes (Hospitalization)
  Sender: FDA-Public Use
  Company Number: None

PATIENT
  Sex: Male
  Weight: 108 kg

DRUGS (4)
  1. DARATUMUMAB\HYALURONIDASE-FIHJ [Suspect]
     Active Substance: DARATUMUMAB\HYALURONIDASE-FIHJ
  2. DEXAMETHASONE [Concomitant]
     Active Substance: DEXAMETHASONE
  3. LENALIDOMIDE [Concomitant]
     Active Substance: LENALIDOMIDE
  4. VELCADE [Concomitant]
     Active Substance: BORTEZOMIB

REACTIONS (8)
  - Influenza [None]
  - Sepsis [None]
  - Pyrexia [None]
  - Tachycardia [None]
  - Blood lactic acid increased [None]
  - Leukocytosis [None]
  - Blood creatinine increased [None]
  - Pneumonia [None]

NARRATIVE: CASE EVENT DATE: 20221223
